FAERS Safety Report 19916281 (Version 2)
Quarter: 2023Q4

REPORT INFORMATION
  Report Type: Spontaneous
  Country: US (occurrence: US)
  Receive Date: 20211005
  Receipt Date: 20231027
  Transmission Date: 20240109
  Serious: No
  Sender: FDA-Public Use
  Company Number: US-SA-SAC20211001000781

PATIENT
  Sex: Male
  Weight: 74.84 kg

DRUGS (5)
  1. DUPIXENT [Suspect]
     Active Substance: DUPILUMAB
     Indication: Dermatitis atopic
     Dosage: 300 MG, QOW
     Route: 058
     Dates: start: 20200627
  2. VITAMIN D3 [Concomitant]
     Active Substance: CHOLECALCIFEROL
  3. ALBUTEROL SULFATE [Concomitant]
     Active Substance: ALBUTEROL SULFATE
  4. LEVOTHYROXINE [Concomitant]
     Active Substance: LEVOTHYROXINE
  5. SODIUM [Concomitant]
     Active Substance: SODIUM

REACTIONS (1)
  - Plantar fasciitis [Unknown]
